FAERS Safety Report 9343171 (Version 2)
Quarter: 2013Q3

REPORT INFORMATION
  Report Type: Spontaneous
  Country: US (occurrence: US)
  Receive Date: 20130611
  Receipt Date: 20130715
  Transmission Date: 20140515
  Serious: No
  Sender: FDA-Public Use
  Company Number: US-009507513-1306USA004589

PATIENT
  Sex: Female

DRUGS (1)
  1. PROVENTIL [Suspect]
     Dosage: 2 PUFFS 4 TIMES DAILY AS NEEDED
     Route: 055

REACTIONS (2)
  - Underdose [Unknown]
  - No adverse event [Unknown]
